FAERS Safety Report 8173769-0 (Version None)
Quarter: 2012Q1

REPORT INFORMATION
  Report Type: 
  Country: None (occurrence: None)
  Receive Date: 20120224
  Receipt Date: 20120215
  Transmission Date: 20120608
  Serious: Yes (Other)
  Sender: FDA-Public Use
  Company Number: ACO_28378_2011

PATIENT
  Age: 60 Year
  Sex: Male
  Weight: 71.2 kg

DRUGS (3)
  1. TYSABRI [Concomitant]
  2. LISINOPRIL [Concomitant]
  3. AMPYRA [Suspect]
     Indication: GAIT DISTURBANCE
     Dosage: 10 MG, BID, ORAL, 10 MG, DAILY
     Route: 048
     Dates: start: 20100922

REACTIONS (4)
  - INAPPROPRIATE SCHEDULE OF DRUG ADMINISTRATION [None]
  - HEADACHE [None]
  - CEREBROVASCULAR ACCIDENT [None]
  - BACK PAIN [None]
